FAERS Safety Report 6098175-4 (Version None)
Quarter: 2009Q1

REPORT INFORMATION
  Report Type: 
  Country: None (occurrence: None)
  Receive Date: 20090227
  Receipt Date: 20090224
  Transmission Date: 20090719
  Serious: Yes (Death, Other)
  Sender: FDA-Public Use
  Company Number: PHHY2009FR06958

PATIENT
  Sex: Female

DRUGS (6)
  1. NICARDIPINE HCL [Suspect]
     Dosage: 50 MG, BID
     Route: 048
  2. TEGRETOL [Interacting]
     Dosage: 500 MG, DAILY
     Route: 048
  3. TRIATEC [Suspect]
     Dosage: 2.5 MG, DAILY
     Route: 048
  4. CERVOXAN [Suspect]
     Dosage: 60 MG, DAILY
     Route: 048
  5. DI-ANTALVIC [Interacting]
     Dosage: 6 DF, DAILY
     Route: 048
  6. ASPEGIC 325 [Concomitant]
     Dosage: 250 MG, PER DAY

REACTIONS (18)
  - BLOOD CREATININE INCREASED [None]
  - BLOOD PRESSURE DIASTOLIC DECREASED [None]
  - CORONARY ARTERY DISEASE [None]
  - FALL [None]
  - HEAD INJURY [None]
  - HYPERHIDROSIS [None]
  - LIVEDO RETICULARIS [None]
  - METABOLIC ACIDOSIS [None]
  - MUSCLE SPASMS [None]
  - PALLOR [None]
  - PRESYNCOPE [None]
  - RENAL FAILURE [None]
  - SEPTIC SHOCK [None]
  - SHOCK [None]
  - SKELETAL INJURY [None]
  - SPLENECTOMY [None]
  - SPLENIC RUPTURE [None]
  - THIRST [None]
